FAERS Safety Report 22031719 (Version 1)
Quarter: 2023Q1

REPORT INFORMATION
  Report Type: Spontaneous
  Country: US (occurrence: US)
  Receive Date: 20230224
  Receipt Date: 20230224
  Transmission Date: 20230417
  Serious: No
  Sender: FDA-Public Use
  Company Number: US-TEVA-2023-US-2855030

PATIENT
  Sex: Female

DRUGS (2)
  1. LIDOCAINE [Suspect]
     Active Substance: LIDOCAINE
     Indication: Back pain
     Dosage: 2 DOSAGE FORMS DAILY; 12 HOURS ON AND 12 HOURS OFF
     Route: 065
  2. QULIPTA [Concomitant]
     Active Substance: ATOGEPANT
     Indication: Product used for unknown indication
     Route: 065

REACTIONS (3)
  - Back pain [Unknown]
  - Insomnia [Unknown]
  - Drug ineffective [Unknown]
